FAERS Safety Report 16973938 (Version 1)
Quarter: 2019Q4

REPORT INFORMATION
  Report Type: Spontaneous
  Country: IT (occurrence: IT)
  Receive Date: 20191030
  Receipt Date: 20191030
  Transmission Date: 20200122
  Serious: Yes (Other)
  Sender: FDA-Public Use
  Company Number: IT-TEVA-2019-IT-1129357

PATIENT
  Age: 56 Year
  Sex: Male
  Weight: 76 kg

DRUGS (2)
  1. CALCIO LEVOFOLINATO TEVA [Concomitant]
     Active Substance: LEVOLEUCOVORIN CALCIUM
     Indication: RECTAL ADENOCARCINOMA
     Dosage: 200 MG/M2
     Route: 042
     Dates: start: 20190812
  2. OXALIPLATINO TEVA [Suspect]
     Active Substance: OXALIPLATIN
     Indication: RECTAL ADENOCARCINOMA
     Dosage: 85 MG/M2
     Route: 042
     Dates: start: 20190812

REACTIONS (3)
  - Pruritus [Recovering/Resolving]
  - Lip erythema [Recovering/Resolving]
  - Rash erythematous [Recovering/Resolving]

NARRATIVE: CASE EVENT DATE: 20191014
